FAERS Safety Report 17502309 (Version 1)
Quarter: 2020Q1

REPORT INFORMATION
  Report Type: Spontaneous
  Country: CZ (occurrence: CZ)
  Receive Date: 20200305
  Receipt Date: 20200305
  Transmission Date: 20200409
  Serious: Yes (Other)
  Sender: FDA-Public Use
  Company Number: CZ-MYLANLABS-2020M1024017

PATIENT
  Age: 42 Year
  Sex: Male

DRUGS (4)
  1. HYDROCHLOROTHIAZIDE W/RAMIPRIL [Suspect]
     Active Substance: HYDROCHLOROTHIAZIDE\RAMIPRIL
     Indication: HYPERTENSION
     Dosage: UNK (5/12.5 MG)
  2. ROSUVASTATIN. [Concomitant]
     Active Substance: ROSUVASTATIN
     Dosage: 10 MILLIGRAM, QD
  3. METOPROLOL. [Suspect]
     Active Substance: METOPROLOL
     Indication: HYPERTENSION
     Dosage: 50 MILLIGRAM, QD
  4. MOXONIDINE [Suspect]
     Active Substance: MOXONIDINE
     Indication: HYPERTENSION
     Dosage: 0.4 MILLIGRAM, QD

REACTIONS (6)
  - Erectile dysfunction [Recovered/Resolved]
  - Cardiometabolic syndrome [Recovered/Resolved]
  - Depression [Recovered/Resolved]
  - Dry mouth [Recovered/Resolved]
  - Nightmare [Recovered/Resolved]
  - Disturbance in attention [Recovered/Resolved]
